FAERS Safety Report 25408420 (Version 1)
Quarter: 2025Q2

REPORT INFORMATION
  Report Type: Spontaneous
  Country: ES (occurrence: ES)
  Receive Date: 20250606
  Receipt Date: 20250606
  Transmission Date: 20250717
  Serious: Yes (Other)
  Sender: INSUD PHARMA
  Company Number: ES-EXELTIS PHARMACEUTICAL HOLDING, S.L.-2505ES04125

PATIENT
  Age: 40 Year
  Sex: Female

DRUGS (3)
  1. DROSPIRENONE [Suspect]
     Active Substance: DROSPIRENONE
     Indication: Menstrual cycle management
     Dosage: 4 MILLIGRAM, QD
     Route: 048
     Dates: start: 202205, end: 20250526
  2. DROSPIRENONE [Suspect]
     Active Substance: DROSPIRENONE
     Indication: Dysmenorrhoea
  3. DROSPIRENONE [Suspect]
     Active Substance: DROSPIRENONE
     Indication: Menstruation irregular

REACTIONS (3)
  - Inner ear infarction [Not Recovered/Not Resolved]
  - Deafness unilateral [Not Recovered/Not Resolved]
  - Product use in unapproved indication [Unknown]

NARRATIVE: CASE EVENT DATE: 20250101
